FAERS Safety Report 10457861 (Version 4)
Quarter: 2015Q4

REPORT INFORMATION
  Report Type: Spontaneous
  Country: JP (occurrence: JP)
  Receive Date: 20140916
  Receipt Date: 20151130
  Transmission Date: 20160304
  Serious: Yes (Death, Other)
  Sender: FDA-Public Use
  Company Number: JP-GLAXOSMITHKLINE-B1032740A

PATIENT
  Age: 84 Year
  Sex: Male
  Weight: 55 kg

DRUGS (8)
  1. ASPIRIN. [Concomitant]
     Active Substance: ASPIRIN
     Dosage: 100 MG, QD
  2. EVIPROSTAT [Concomitant]
     Active Substance: CHIMAPHILA UMBELLATA\MANGANESE CHLORIDE\POPULUS TREMULOIDES\SODIUM TAUROCHOLATE
     Dosage: 1 DF, TID
  3. FLUTIDE [Concomitant]
     Active Substance: FLUTICASONE PROPIONATE
  4. BENIDIPINE HYDROCHLORIDE [Concomitant]
     Active Substance: BENIDIPINE HYDROCHLORIDE
     Dosage: 4 MG, QD
  5. SEREVENT DISKUS [Concomitant]
     Active Substance: SALMETEROL XINAFOATE
  6. ZETIA [Concomitant]
     Active Substance: EZETIMIBE
     Dosage: 10 MG, QD
  7. AVOLVE [Suspect]
     Active Substance: DUTASTERIDE
     Indication: BENIGN PROSTATIC HYPERPLASIA
     Dosage: 0.5 MG, QD
     Route: 048
     Dates: start: 20120618, end: 20140716
  8. URIEF [Concomitant]
     Active Substance: SILODOSIN
     Dosage: 4 MG, BID

REACTIONS (24)
  - Metastases to adrenals [Unknown]
  - Prostatomegaly [Unknown]
  - Metastases to liver [Unknown]
  - Cerebral small vessel ischaemic disease [Unknown]
  - Rathke^s cleft cyst [Unknown]
  - Eye symptom [Unknown]
  - Decreased appetite [Unknown]
  - Hepatic failure [Fatal]
  - Prostate cancer [Fatal]
  - Metastases to lung [Unknown]
  - Hepatic encephalopathy [Unknown]
  - Soft tissue mass [Unknown]
  - Liver disorder [Fatal]
  - Metastases to bone [Unknown]
  - Tumour invasion [Unknown]
  - Urinary retention [Unknown]
  - Lacunar infarction [Unknown]
  - Neurone-specific enolase increased [Unknown]
  - Gliosis [Unknown]
  - Intracranial pressure increased [Unknown]
  - Hepatic function abnormal [Unknown]
  - Metastases to lymph nodes [Unknown]
  - Diplopia [Unknown]
  - Lymphadenopathy [Unknown]

NARRATIVE: CASE EVENT DATE: 20140716
